FAERS Safety Report 6850248-1 (Version None)
Quarter: 2010Q3

REPORT INFORMATION
  Report Type: 
  Country: None (occurrence: None)
  Receive Date: 20100716
  Receipt Date: 20071015
  Transmission Date: 20110219
  Serious: No
  Sender: FDA-Public Use
  Company Number: US-PFIZER INC-2007086886

PATIENT
  Sex: Female
  Weight: 81.818 kg

DRUGS (7)
  1. CHANTIX [Suspect]
     Indication: SMOKING CESSATION THERAPY
     Route: 048
     Dates: start: 20071002
  2. ALL OTHER THERAPEUTIC PRODUCTS [Concomitant]
     Route: 061
  3. PREGNENOLONE [Concomitant]
     Route: 048
  4. PROGESTERONE [Concomitant]
     Route: 048
  5. MELATONIN [Concomitant]
     Route: 048
  6. HYDROCHLOROTHIAZIDE [Concomitant]
     Route: 048
  7. SEROTONIN [Concomitant]
     Route: 048

REACTIONS (2)
  - INSOMNIA [None]
  - NAUSEA [None]
